FAERS Safety Report 20901426 (Version 2)
Quarter: 2022Q2

REPORT INFORMATION
  Report Type: Spontaneous
  Country: US (occurrence: US)
  Receive Date: 20220601
  Receipt Date: 20220622
  Transmission Date: 20220721
  Serious: Yes (Hospitalization)
  Sender: FDA-Public Use
  Company Number: US-BRISTOL-MYERS SQUIBB COMPANY-2022-044450

PATIENT
  Age: 53 Year
  Sex: Male
  Weight: 79.3 kg

DRUGS (18)
  1. NULOJIX [Suspect]
     Active Substance: BELATACEPT
     Indication: Lung transplant
     Dosage: FREQ : EVERY TWO WEEKS AFTER NEXT EVERY FOUR WEEKS
     Route: 042
     Dates: start: 20220413
  2. Acetaminophen oral capsule [Concomitant]
  3. azathioprine 50 mg tablet [Concomitant]
  4. AZITHROMYCIN [Concomitant]
     Active Substance: AZITHROMYCIN
     Dosage: MONDAY, WEDNESDAY, FRIDAY
  5. CYCLOSPORINE [Concomitant]
     Active Substance: CYCLOSPORINE
     Dosage: DAILY FOR A YEAR UNSURE IF DOSE IS THE SAME
  6. ERGOCALCIFEROL [Concomitant]
     Active Substance: ERGOCALCIFEROL
     Dosage: EVERY MONDAY, WEDNESDAY, FRIDAY
     Route: 048
  7. EVEROLIMUS [Concomitant]
     Active Substance: EVEROLIMUS
  8. GABAPENTIN [Concomitant]
     Active Substance: GABAPENTIN
  9. MUCINEX [Concomitant]
     Active Substance: GUAIFENESIN
  10. METOPROLOL SUCCINATE [Concomitant]
     Active Substance: METOPROLOL SUCCINATE
  11. SINGULAIR [Concomitant]
     Active Substance: MONTELUKAST SODIUM
     Dosage: DAILY
  12. NIFEDIPINE [Concomitant]
     Active Substance: NIFEDIPINE
     Dosage: DAILY
  13. ZOFRAN [Concomitant]
     Active Substance: ONDANSETRON HYDROCHLORIDE
     Route: 048
  14. PRAVASTATIN [Concomitant]
     Active Substance: PRAVASTATIN
     Dosage: DAILY
     Route: 048
  15. PREDNISONE [Concomitant]
     Active Substance: PREDNISONE
     Dosage: DAILY
     Route: 048
  16. BACTRIM [Concomitant]
     Active Substance: SULFAMETHOXAZOLE\TRIMETHOPRIM
     Dosage: MONDAY, WEDNESDAY, FRIDAY
  17. TAMSULOSIN [Concomitant]
     Active Substance: TAMSULOSIN
     Dosage: BEDTIME
  18. TRAZODONE [Concomitant]
     Active Substance: TRAZODONE HYDROCHLORIDE
     Dosage: AT BEDTIME
     Route: 048

REACTIONS (2)
  - Hospitalisation [Recovered/Resolved]
  - Product storage error [Unknown]
